FAERS Safety Report 5154425-X (Version None)
Quarter: 2006Q4

REPORT INFORMATION
  Report Type: 
  Country: None (occurrence: None)
  Receive Date: 20061114
  Receipt Date: 20061101
  Transmission Date: 20070319
  Serious: Yes (Other)
  Sender: FDA-Public Use
  Company Number: 2006134091

PATIENT
  Age: 50 Year
  Sex: Male

DRUGS (2)
  1. GEODON [Suspect]
     Indication: AGITATION
     Dosage: INTRAMUSCULAR
     Route: 030
  2. HALOPERIDOL [Suspect]

REACTIONS (2)
  - DRUG INEFFECTIVE [None]
  - HALLUCINATION [None]
